FAERS Safety Report 16704176 (Version 2)
Quarter: 2020Q2

REPORT INFORMATION
  Report Type: Spontaneous
  Country: RU (occurrence: RU)
  Receive Date: 20190814
  Receipt Date: 20200406
  Transmission Date: 20200713
  Serious: Yes (Other)
  Sender: FDA-Public Use
  Company Number: RU-BAYER-2019-147092

PATIENT
  Age: 21 Year
  Sex: Female

DRUGS (1)
  1. YARINA [Suspect]
     Active Substance: DROSPIRENONE\ETHINYL ESTRADIOL
     Indication: CONTRACEPTION
     Route: 048

REACTIONS (8)
  - Depression [None]
  - Feeling abnormal [None]
  - Tremor [None]
  - Blood pressure increased [None]
  - Colitis ulcerative [Not Recovered/Not Resolved]
  - Therapeutic response unexpected [Recovered/Resolved]
  - Loss of consciousness [None]
  - Apathy [None]
